FAERS Safety Report 5465457-6 (Version None)
Quarter: 2007Q3

REPORT INFORMATION
  Report Type: 
  Country: None (occurrence: None)
  Receive Date: 20070920
  Receipt Date: 20070913
  Transmission Date: 20080115
  Serious: Yes (Hospitalization)
  Sender: FDA-Public Use
  Company Number: 2007-03746

PATIENT
  Age: 61 Year
  Sex: Female

DRUGS (5)
  1. PREDNISONE TAB [Suspect]
     Indication: BRONCHITIS
     Dosage: SEE IMAGE
     Route: 048
     Dates: start: 20070501, end: 20070501
  2. PREDNISONE TAB [Suspect]
     Indication: BRONCHITIS
     Dosage: SEE IMAGE
     Route: 048
     Dates: start: 20070501, end: 20070501
  3. PREDNISONE TAB [Suspect]
     Indication: BRONCHITIS
     Dosage: SEE IMAGE
     Route: 048
     Dates: start: 20070501, end: 20070501
  4. ZITHROMAX [Concomitant]
  5. AVELOX [Concomitant]

REACTIONS (6)
  - ASTHENIA [None]
  - HYPERGLYCAEMIA [None]
  - HYPERHIDROSIS [None]
  - TREMOR [None]
  - URINARY TRACT INFECTION [None]
  - UROSEPSIS [None]
